FAERS Safety Report 19033888 (Version 1)
Quarter: 2021Q1

REPORT INFORMATION
  Report Type: Report from Study
  Country: HN (occurrence: HN)
  Receive Date: 20210319
  Receipt Date: 20210319
  Transmission Date: 20210420
  Serious: Yes (Other)
  Sender: FDA-Public Use
  Company Number: NVSC2021HN061590

PATIENT
  Age: 72 Year
  Sex: Female

DRUGS (2)
  1. GALVUS MET [Suspect]
     Active Substance: METFORMIN HYDROCHLORIDE\VILDAGLIPTIN
     Dosage: UNK, 50/850 MG
     Route: 065
     Dates: start: 20200601
  2. GALVUS MET [Suspect]
     Active Substance: METFORMIN HYDROCHLORIDE\VILDAGLIPTIN
     Indication: BLOOD GLUCOSE ABNORMAL
     Dosage: UNK, 50/500 MG
     Route: 065
     Dates: end: 20200601

REACTIONS (5)
  - Optic nerve disorder [Unknown]
  - Illness [Unknown]
  - Malaise [Unknown]
  - Blood glucose increased [Unknown]
  - Eye disorder [Unknown]
